FAERS Safety Report 5766774-2 (Version None)
Quarter: 2008Q2

REPORT INFORMATION
  Report Type: 
  Country: None (occurrence: None)
  Receive Date: 20080612
  Receipt Date: 20080603
  Transmission Date: 20081010
  Serious: Yes (Hospitalization)
  Sender: FDA-Public Use
  Company Number: US-ROCHE-568318

PATIENT
  Age: 50 Year
  Sex: Female

DRUGS (7)
  1. KETOROLAC TROMETHAMINE [Suspect]
     Indication: PAIN MANAGEMENT
     Route: 065
  2. NAFCILLIN SODIUM [Concomitant]
  3. RIFAMPIN [Concomitant]
  4. VANCOMYCIN [Concomitant]
  5. CIPROFLOXACIN HCL [Concomitant]
  6. IMIPENEM [Concomitant]
  7. CEFAZOLIN [Concomitant]

REACTIONS (3)
  - CATHETER SITE HAEMORRHAGE [None]
  - HYPOPROTHROMBINAEMIA [None]
  - RENAL FAILURE ACUTE [None]
